FAERS Safety Report 7421694-2 (Version None)
Quarter: 2011Q1

REPORT INFORMATION
  Report Type: 
  Country: None (occurrence: None)
  Receive Date: 20110302
  Receipt Date: 20101122
  Transmission Date: 20110831
  Serious: No
  Sender: FDA-Public Use
  Company Number: 022568

PATIENT
  Age: 58 Year
  Sex: Male

DRUGS (1)
  1. CIMZIA [Suspect]
     Dosage: SUBCUTANEOUS
     Route: 058
     Dates: start: 20100810

REACTIONS (2)
  - BLOOD CREATINE PHOSPHOKINASE INCREASED [None]
  - BLOOD THYROID STIMULATING HORMONE INCREASED [None]
